FAERS Safety Report 18850887 (Version 1)
Quarter: 2021Q1

REPORT INFORMATION
  Report Type: Report from Study
  Country: None (occurrence: US)
  Receive Date: 20210204
  Receipt Date: 20210204
  Transmission Date: 20210420
  Serious: Yes (Other)
  Sender: FDA-Public Use
  Company Number: US-ABBVIE-21K-163-3758934-00

PATIENT
  Age: 70 Year
  Sex: Male

DRUGS (2)
  1. LUPRON DEPOT [Suspect]
     Active Substance: LEUPROLIDE ACETATE
     Indication: PROSTATE CANCER
     Route: 030
  2. XTANDI [Suspect]
     Active Substance: ENZALUTAMIDE
     Indication: PRODUCT USED FOR UNKNOWN INDICATION
     Route: 065

REACTIONS (19)
  - Contrast media reaction [Unknown]
  - Hot flush [Not Recovered/Not Resolved]
  - Histoplasmosis [Unknown]
  - Diverticulum intestinal [Unknown]
  - Pulmonary mass [Unknown]
  - Large intestinal obstruction [Unknown]
  - Anaphylactic reaction [Unknown]
  - Abdominal distension [Unknown]
  - Hepatic steatosis [Unknown]
  - Hiatus hernia [Unknown]
  - Fluid retention [Unknown]
  - Back pain [Unknown]
  - Prostatic specific antigen increased [Unknown]
  - Renal cyst [Unknown]
  - Cholelithiasis [Unknown]
  - Spinal osteoarthritis [Unknown]
  - Weight increased [Unknown]
  - Gynaecomastia [Unknown]
  - Fatigue [Not Recovered/Not Resolved]

NARRATIVE: CASE EVENT DATE: 2012
